FAERS Safety Report 17430415 (Version 1)
Quarter: 2020Q1

REPORT INFORMATION
  Report Type: Spontaneous
  Country: US (occurrence: US)
  Receive Date: 20200216
  Receipt Date: 20200216
  Transmission Date: 20200409
  Serious: No
  Sender: FDA-Public Use
  Company Number: None

PATIENT
  Age: 65 Year
  Sex: Female
  Weight: 77.4 kg

DRUGS (5)
  1. LOSARTAN 50MG [Concomitant]
     Active Substance: LOSARTAN
  2. HCTZ 12.5MG CAPS [Concomitant]
     Active Substance: HYDROCHLOROTHIAZIDE
  3. MULTIVITAMIN [Concomitant]
     Active Substance: VITAMINS
  4. ASA LO DOSE 81MG [Concomitant]
  5. DELSYM [Suspect]
     Active Substance: DEXTROMETHORPHAN
     Indication: COUGH
     Route: 048
     Dates: start: 20200215, end: 20200216

REACTIONS (3)
  - Dizziness [None]
  - Balance disorder [None]
  - Diarrhoea [None]

NARRATIVE: CASE EVENT DATE: 20200216
